FAERS Safety Report 9344584 (Version 3)
Quarter: 2013Q3

REPORT INFORMATION
  Report Type: Spontaneous
  Country: US (occurrence: US)
  Receive Date: 20130612
  Receipt Date: 20130828
  Transmission Date: 20140515
  Serious: No
  Sender: FDA-Public Use
  Company Number: US-009507513-1306USA004937

PATIENT
  Sex: Male

DRUGS (2)
  1. PEG-INTRON [Suspect]
     Indication: HEPATITIS C
     Dosage: REDIPEN
     Dates: start: 20130524
  2. REBETOL [Suspect]
     Indication: HEPATITIS C
     Dosage: UNKNOWN
     Dates: start: 20130524

REACTIONS (6)
  - Injection site reaction [Unknown]
  - Malaise [Unknown]
  - Depressed mood [Unknown]
  - Crying [Unknown]
  - Decreased appetite [Unknown]
  - Weight decreased [Unknown]
